FAERS Safety Report 4748523-X (Version None)
Quarter: 2005Q3

REPORT INFORMATION
  Report Type: 
  Country: None (occurrence: None)
  Receive Date: 20050818
  Receipt Date: 20050805
  Transmission Date: 20060218
  Serious: Yes (Other)
  Sender: FDA-Public Use
  Company Number: 2005111670

PATIENT
  Age: 16 Year
  Sex: Female
  Weight: 73.4827 kg

DRUGS (1)
  1. ACTIFED [Suspect]
     Indication: NASAL CONGESTION
     Dosage: ONE TABLET DAILY, ORAL
     Route: 048
     Dates: start: 19860101

REACTIONS (2)
  - DRUG DEPENDENCE [None]
  - VOMITING [None]
